FAERS Safety Report 6000179-4 (Version None)
Quarter: 2008Q4

REPORT INFORMATION
  Report Type: 
  Country: None (occurrence: None)
  Receive Date: 20081211
  Receipt Date: 20081211
  Transmission Date: 20090506
  Serious: Yes (Hospitalization)
  Sender: FDA-Public Use
  Company Number: None

PATIENT
  Age: 71 Year
  Sex: Male
  Weight: 89 kg

DRUGS (12)
  1. SEROQUEL [Suspect]
     Dosage: 100MG PO BID
     Dates: start: 20000101
  2. ALBUTEROL/IPRATROPIUM BR [Concomitant]
  3. BENAZEPRIL HYDROCHLORIDE [Concomitant]
  4. BRIMONIDINE TARTRATE OPHSOLN [Concomitant]
  5. CARVEDILOL [Concomitant]
  6. DIGOXIN [Concomitant]
  7. FINASTERIDE FUROSEMIDE [Concomitant]
  8. NITROGLYCERIN [Concomitant]
  9. OXYBUTYNIN CHLORIDE [Concomitant]
  10. SIMVASTATIN [Concomitant]
  11. SPIRONOLACTONE [Concomitant]
  12. TERAZOSIN HCL [Concomitant]

REACTIONS (1)
  - CORONARY ARTERY DISEASE [None]
